FAERS Safety Report 13638084 (Version 1)
Quarter: 2017Q2

REPORT INFORMATION
  Report Type: Spontaneous
  Country: FR (occurrence: FR)
  Receive Date: 20170609
  Receipt Date: 20170609
  Transmission Date: 20170830
  Serious: Yes (Life-Threatening, Hospitalization, Other)
  Sender: FDA-Public Use
  Company Number: FR-BAXTER-2017BAX022702

PATIENT
  Age: 46 Year
  Sex: Female

DRUGS (14)
  1. ROCEPHINE [Suspect]
     Active Substance: CEFTRIAXONE SODIUM
     Indication: LUNG INFECTION
  2. ENDOXAN 50 MG, COMPRIM? ENROB? [Suspect]
     Active Substance: CYCLOPHOSPHAMIDE
     Indication: NEOPLASM PROGRESSION
     Dosage: THIRD COURSE OF RFC PROTOCOL
     Route: 048
  3. MABTHERA [Suspect]
     Active Substance: RITUXIMAB
     Dosage: LAST COURSE OF RFC PROTOCOL
     Route: 042
     Dates: start: 20161205
  4. FLUDARABINE PHOSPHATE. [Suspect]
     Active Substance: FLUDARABINE PHOSPHATE
     Dosage: LAST COURSE OF RFC PROTOCOL
     Route: 048
     Dates: start: 20161205
  5. ROCEPHINE [Suspect]
     Active Substance: CEFTRIAXONE SODIUM
     Indication: RESPIRATORY TRACT INFECTION
     Route: 065
  6. ENDOXAN 50 MG, COMPRIM? ENROB? [Suspect]
     Active Substance: CYCLOPHOSPHAMIDE
     Dosage: LAST COURSE OF RFC PROTOCOL
     Route: 048
     Dates: start: 20161205
  7. FLUDARABINE PHOSPHATE. [Suspect]
     Active Substance: FLUDARABINE PHOSPHATE
     Indication: NEOPLASM MALIGNANT
     Dosage: FIRST AND SECOND COURSE OF RFC PROTOCOL
     Route: 048
     Dates: start: 20160704
  8. BACTRIM [Suspect]
     Active Substance: SULFAMETHOXAZOLE\TRIMETHOPRIM
     Indication: OPPORTUNISTIC INFECTION PROPHYLAXIS
     Route: 048
     Dates: start: 20160704, end: 20170505
  9. GRANOCYTE [Suspect]
     Active Substance: LENOGRASTIM
     Indication: PROPHYLAXIS
     Dosage: LAST INJECTION
     Route: 065
     Dates: end: 201702
  10. MABTHERA [Suspect]
     Active Substance: RITUXIMAB
     Indication: NEOPLASM PROGRESSION
     Dosage: THIRD COURSE OF RFC PROTOCOL
     Route: 042
  11. FLUDARABINE PHOSPHATE. [Suspect]
     Active Substance: FLUDARABINE PHOSPHATE
     Indication: NEOPLASM PROGRESSION
     Dosage: THIRD COURSE OF RFC PROTOCOL
     Route: 048
  12. ZELITREX [Suspect]
     Active Substance: VALACYCLOVIR HYDROCHLORIDE
     Indication: OPPORTUNISTIC INFECTION PROPHYLAXIS
     Route: 048
     Dates: start: 20160704
  13. MABTHERA [Suspect]
     Active Substance: RITUXIMAB
     Indication: NEOPLASM MALIGNANT
     Dosage: FIRST AND SECOND COURSE OF RFC PROTOCOL
     Route: 042
     Dates: start: 20160704
  14. ENDOXAN 50 MG, COMPRIM? ENROB? [Suspect]
     Active Substance: CYCLOPHOSPHAMIDE
     Indication: NEOPLASM MALIGNANT
     Dosage: FIRST AND SECOND COURSE OF RFC PROTOCOL
     Route: 048
     Dates: start: 20160704

REACTIONS (9)
  - Pancytopenia [Recovered/Resolved]
  - Lung infection [Unknown]
  - Respiratory tract infection [Unknown]
  - Neutropenia [Unknown]
  - Cytopenia [Unknown]
  - Leukopenia [Unknown]
  - General physical condition abnormal [Unknown]
  - Lung disorder [Recovered/Resolved]
  - Sepsis [Recovered/Resolved]

NARRATIVE: CASE EVENT DATE: 201702
